FAERS Safety Report 18697283 (Version 4)
Quarter: 2021Q1

REPORT INFORMATION
  Report Type: Spontaneous
  Country: US (occurrence: US)
  Receive Date: 20210104
  Receipt Date: 20210126
  Transmission Date: 20210419
  Serious: No
  Sender: FDA-Public Use
  Company Number: US-009507513-2101USA000192

PATIENT
  Sex: Female
  Weight: 142.18 kg

DRUGS (2)
  1. NEXPLANON [Suspect]
     Active Substance: ETONOGESTREL
     Indication: CONTRACEPTION
     Dosage: IMPLANT, 1 TIME DOSE EVERY THREE YEARS
     Route: 059
     Dates: start: 20180320, end: 20201219
  2. NEXPLANON [Suspect]
     Active Substance: ETONOGESTREL
     Indication: CONTRACEPTION
     Dosage: 1 IMPLANT
     Route: 059
     Dates: start: 20201219

REACTIONS (2)
  - No adverse event [Unknown]
  - Device breakage [Recovered/Resolved]
